FAERS Safety Report 8252772-6 (Version None)
Quarter: 2012Q2

REPORT INFORMATION
  Report Type: 
  Country: None (occurrence: None)
  Receive Date: 20120402
  Receipt Date: 20111216
  Transmission Date: 20120825
  Serious: No
  Sender: FDA-Public Use
  Company Number: US-ABBOTT-11P-163-0885170-00

PATIENT
  Sex: Male
  Weight: 118.04 kg

DRUGS (9)
  1. ASCORBIC ACID [Concomitant]
     Indication: PRODUCT USED FOR UNKNOWN INDICATION
  2. ROBAXIN [Concomitant]
     Indication: MUSCLE SPASMS
  3. VIAGRA [Concomitant]
     Indication: PRODUCT USED FOR UNKNOWN INDICATION
  4. FERROUS GLUCONATE [Concomitant]
     Indication: PRODUCT USED FOR UNKNOWN INDICATION
  5. LORATADINE [Concomitant]
     Indication: HYPERSENSITIVITY
  6. ANDROGEL [Suspect]
     Indication: BLOOD TESTOSTERONE DECREASED
     Route: 061
     Dates: start: 20111101, end: 20111216
  7. COLACE [Concomitant]
     Indication: CONSTIPATION PROPHYLAXIS
  8. OMEPRAZOLE [Concomitant]
     Indication: GASTROOESOPHAGEAL REFLUX DISEASE
  9. BUSPIRONE HCL [Concomitant]
     Indication: ANXIETY

REACTIONS (1)
  - RASH [None]
